FAERS Safety Report 23805491 (Version 1)
Quarter: 2024Q2

REPORT INFORMATION
  Report Type: Spontaneous
  Country: US (occurrence: US)
  Receive Date: 20240502
  Receipt Date: 20240502
  Transmission Date: 20240715
  Serious: Yes (Other)
  Sender: FDA-Public Use
  Company Number: US-REGENERON PHARMACEUTICALS, INC.-2024-066064

PATIENT
  Sex: Female

DRUGS (1)
  1. EYLEA HD [Suspect]
     Active Substance: AFLIBERCEPT
     Indication: Macular degeneration
     Dosage: UNK, INTO LEFT EYE, FORMULATION: HD VIAL

REACTIONS (4)
  - Mental impairment [Unknown]
  - Metamorphopsia [Unknown]
  - Xanthopsia [Unknown]
  - Ocular discomfort [Unknown]
